FAERS Safety Report 12170788 (Version 2)
Quarter: 2016Q1

REPORT INFORMATION
  Report Type: Spontaneous
  Country: US (occurrence: US)
  Receive Date: 20160311
  Receipt Date: 20160321
  Transmission Date: 20160526
  Serious: No
  Sender: FDA-Public Use
  Company Number: US-BAYER-2016-039353

PATIENT
  Age: 81 Year
  Sex: Female

DRUGS (3)
  1. CLARITIN [Suspect]
     Active Substance: LORATADINE
     Indication: HEAD DISCOMFORT
  2. CLARITIN [Suspect]
     Active Substance: LORATADINE
     Indication: AIRWAY SECRETION CLEARANCE THERAPY
  3. CLARITIN [Suspect]
     Active Substance: LORATADINE
     Indication: DIZZINESS
     Dosage: 1 DF, PRN

REACTIONS (4)
  - Otorrhoea [None]
  - Product use issue [None]
  - Ear pain [None]
  - Nausea [None]
